FAERS Safety Report 6933520-6 (Version None)
Quarter: 2010Q3

REPORT INFORMATION
  Report Type: 
  Country: None (occurrence: None)
  Receive Date: 20100820
  Receipt Date: 20100810
  Transmission Date: 20110219
  Serious: Yes (Hospitalization, Other)
  Sender: FDA-Public Use
  Company Number: TR-NOVOPROD-307547

PATIENT
  Sex: Female
  Weight: 89 kg

DRUGS (1)
  1. NOVORAPID FLEXPEN [Suspect]
     Indication: GESTATIONAL DIABETES
     Dosage: 14 IU, QD
     Route: 058
     Dates: start: 20100408, end: 20100530

REACTIONS (3)
  - DRUG EXPOSURE DURING PREGNANCY [None]
  - PREMATURE LABOUR [None]
  - STILLBIRTH [None]
